FAERS Safety Report 20855793 (Version 1)
Quarter: 2022Q2

REPORT INFORMATION
  Report Type: Spontaneous
  Country: US (occurrence: US)
  Receive Date: 20220520
  Receipt Date: 20220520
  Transmission Date: 20220721
  Serious: No
  Sender: FDA-Public Use
  Company Number: US-ELI_LILLY_AND_COMPANY-US202205008370

PATIENT
  Age: 59 Year
  Sex: Male

DRUGS (1)
  1. BEBTELOVIMAB [Suspect]
     Active Substance: BEBTELOVIMAB
     Indication: Product used for unknown indication
     Dosage: UNK UNK, SINGLE
     Dates: start: 20220518, end: 20220518

REACTIONS (3)
  - Tremor [Unknown]
  - Dyskinesia [Unknown]
  - Flushing [Unknown]

NARRATIVE: CASE EVENT DATE: 20220518
